FAERS Safety Report 4471517-9 (Version None)
Quarter: 2004Q4

REPORT INFORMATION
  Report Type: 
  Country: None (occurrence: None)
  Receive Date: 20041007
  Receipt Date: 20041007
  Transmission Date: 20050328
  Serious: Yes (Death)
  Sender: FDA-Public Use
  Company Number: None

PATIENT
  Age: 71 Year
  Sex: Female
  Weight: 50.8029 kg

DRUGS (2)
  1. IRINOTECAN HCL [Suspect]
     Indication: CERVIX CARCINOMA
     Dosage: 100 MG/M2; 2X3 WKS; IV
     Route: 042
     Dates: start: 20030730, end: 20040623
  2. CAPECITABINE [Suspect]
     Indication: CERVIX CARCINOMA
     Dosage: 2000 MG/M2; 1-14 DYS; ORAL
     Route: 048
     Dates: start: 20030730, end: 20040629

REACTIONS (1)
  - DISEASE PROGRESSION [None]
